FAERS Safety Report 21917862 (Version 1)
Quarter: 2023Q1

REPORT INFORMATION
  Report Type: Spontaneous
  Country: JP (occurrence: JP)
  Receive Date: 20230127
  Receipt Date: 20230127
  Transmission Date: 20230418
  Serious: Yes (Hospitalization)
  Sender: FDA-Public Use
  Company Number: JP-MTPC-MTPC2023-0002100

PATIENT
  Age: 80 Year
  Sex: Female

DRUGS (1)
  1. EDARAVONE [Suspect]
     Active Substance: EDARAVONE
     Route: 041
     Dates: start: 20221205

REACTIONS (1)
  - Condition aggravated [Unknown]

NARRATIVE: CASE EVENT DATE: 20221229
